FAERS Safety Report 11626447 (Version 1)
Quarter: 2015Q4

REPORT INFORMATION
  Report Type: Spontaneous
  Country: US (occurrence: US)
  Receive Date: 20151013
  Receipt Date: 20151013
  Transmission Date: 20160304
  Serious: No
  Sender: FDA-Public Use
  Company Number: US-ROCHE-1522967

PATIENT
  Age: 29 Year
  Sex: Female

DRUGS (1)
  1. VEMURAFENIB [Suspect]
     Active Substance: VEMURAFENIB
     Indication: METASTATIC MALIGNANT MELANOMA
     Route: 065

REACTIONS (5)
  - Keratoacanthoma [Recovered/Resolved]
  - Papilloma [Recovered/Resolved]
  - Xerosis [Recovered/Resolved]
  - Abdominal discomfort [Recovered/Resolved]
  - Gingival hyperplasia [Recovered/Resolved]
